FAERS Safety Report 18692388 (Version 12)
Quarter: 2021Q1

REPORT INFORMATION
  Report Type: Spontaneous
  Country: PL (occurrence: PL)
  Receive Date: 20210103
  Receipt Date: 20210130
  Transmission Date: 20210419
  Serious: Yes (Life-Threatening, Hospitalization, Other)
  Sender: FDA-Public Use
  Company Number: NVSC2020PL345881

PATIENT
  Age: 69 Year
  Sex: Female

DRUGS (24)
  1. KETOPROFEN. [Suspect]
     Active Substance: KETOPROFEN
     Indication: ARTHRALGIA
     Dosage: AT TIMES OF SEVERE ARTHRALGIA
     Route: 048
  2. DABIGATRAN [Interacting]
     Active Substance: DABIGATRAN
     Indication: ISCHAEMIC HEART DISEASE PROPHYLAXIS
  3. ACETYLSALICYLIC ACID [Interacting]
     Active Substance: ASPIRIN
     Indication: VIRAL INFECTION
     Dosage: UNK
     Route: 048
  4. PERINDOPRIL [Interacting]
     Active Substance: PERINDOPRIL
     Indication: HYPERTENSION
     Dosage: 1 DF, QD(ONE TABL MORNING)
     Route: 048
  5. METOPROLOL. [Suspect]
     Active Substance: METOPROLOL
     Indication: HYPERTENSION
     Dosage: 200 MG, QD
     Route: 048
  6. ACETYLSALICYLIC ACID [Interacting]
     Active Substance: ASPIRIN
     Indication: UPPER RESPIRATORY TRACT INFECTION
  7. NIMESULIDE [Interacting]
     Active Substance: NIMESULIDE
     Indication: ANALGESIC INTERVENTION SUPPORTIVE THERAPY
  8. PROPAFENONE. [Interacting]
     Active Substance: PROPAFENONE
     Indication: ATRIAL FIBRILLATION
     Dosage: 300 MG, ON DEMAND IN THE CASE OF AN EPISODE OF AF
     Route: 048
  9. NIMESULIDE [Interacting]
     Active Substance: NIMESULIDE
     Indication: INFLAMMATION
  10. KETOPROFEN. [Suspect]
     Active Substance: KETOPROFEN
     Indication: ANALGESIC THERAPY
  11. DABIGATRAN [Interacting]
     Active Substance: DABIGATRAN
     Indication: ISCHAEMIC STROKE
     Dosage: 300 MG, QD,150 MG, 2X/DAY
     Route: 048
  12. DABIGATRAN [Interacting]
     Active Substance: DABIGATRAN
     Indication: ANTICOAGULANT THERAPY
     Dosage: 150 MG, BID
     Route: 065
  13. NIMESULIDE [Interacting]
     Active Substance: NIMESULIDE
     Indication: ANTIINFLAMMATORY THERAPY
     Dosage: 100 MG, 2X/DAY (EVERY 12 HOURS)
     Route: 048
  14. NIMESULIDE [Interacting]
     Active Substance: NIMESULIDE
     Indication: ANALGESIC THERAPY
  15. SPORANOX [Interacting]
     Active Substance: ITRACONAZOLE
     Indication: TINEA VERSICOLOUR
     Dosage: 100 MG, 2X/DAY
     Route: 048
  16. TRIPLIXAM [Interacting]
     Active Substance: AMLODIPINE BESYLATE\INDAPAMIDE\PERINDOPRIL ARGININE
     Indication: PRODUCT USED FOR UNKNOWN INDICATION
     Dosage: 1 DF, 1X/DAY(IN THE MORNING)
     Route: 065
  17. METOPROLOL. [Interacting]
     Active Substance: METOPROLOL
     Indication: ATRIAL FIBRILLATION
     Dosage: 100 MG, QD
     Route: 048
  18. DABIGATRAN [Interacting]
     Active Substance: DABIGATRAN
     Indication: ATRIAL FIBRILLATION
  19. INDAPAMIDE. [Suspect]
     Active Substance: INDAPAMIDE
     Indication: HYPERTENSION
     Dosage: 1 DF, QD (UNK, QD (ONE TABL MORNING)
     Route: 048
  20. ROSUVASTATIN. [Suspect]
     Active Substance: ROSUVASTATIN
     Indication: HYPERTENSION
     Dosage: 10 MG, QD (TABLET)
     Route: 048
  21. DABIGATRAN [Interacting]
     Active Substance: DABIGATRAN
     Indication: CARDIOVASCULAR EVENT PROPHYLAXIS
  22. PROPAFENONE. [Interacting]
     Active Substance: PROPAFENONE
     Indication: ARRHYTHMIA PROPHYLAXIS
  23. AMLODIPINE [Interacting]
     Active Substance: AMLODIPINE BESYLATE
     Indication: HYPERTENSION
     Dosage: 1 DF (1X PER DAY IN MORNING)
     Route: 048
  24. NIMESULIDE [Interacting]
     Active Substance: NIMESULIDE
     Indication: PAIN

REACTIONS (29)
  - Troponin increased [Recovered/Resolved]
  - Atrioventricular block [Recovering/Resolving]
  - Drug-disease interaction [Recovered/Resolved]
  - Off label use [Unknown]
  - Overdose [Unknown]
  - Atrioventricular block complete [Recovered/Resolved]
  - Cardiomyopathy [Recovered/Resolved]
  - Bradycardia [Recovered/Resolved]
  - Product use issue [Unknown]
  - Circumstance or information capable of leading to medication error [Recovering/Resolving]
  - Labelled drug-drug interaction medication error [Unknown]
  - Blood pressure decreased [Unknown]
  - Leukocytosis [Unknown]
  - Product dispensing issue [Unknown]
  - Anaemia [Recovered/Resolved]
  - Drug interaction [Recovered/Resolved]
  - Gastritis erosive [Recovered/Resolved]
  - Drug ineffective [Unknown]
  - Pallor [Recovered/Resolved]
  - Drug level changed [Unknown]
  - Bradyarrhythmia [Recovered/Resolved]
  - Incorrect dose administered [Unknown]
  - Product prescribing issue [Recovered/Resolved]
  - Duplicate therapy error [Recovered/Resolved]
  - Product dispensing error [Unknown]
  - Gastrointestinal haemorrhage [Recovered/Resolved]
  - Asthenia [Recovered/Resolved]
  - Syncope [Recovered/Resolved]
  - Haemorrhage [Unknown]

NARRATIVE: CASE EVENT DATE: 2002
